FAERS Safety Report 14488625 (Version 2)
Quarter: 2018Q1

REPORT INFORMATION
  Report Type: Report from Study
  Country: US (occurrence: US)
  Receive Date: 20180205
  Receipt Date: 20180228
  Transmission Date: 20180509
  Serious: Yes (Hospitalization)
  Sender: FDA-Public Use
  Company Number: US-ACTELION-A-US2018-166951

PATIENT
  Age: 64 Year
  Sex: Female
  Weight: 48.98 kg

DRUGS (3)
  1. OPSUMIT [Suspect]
     Active Substance: MACITENTAN
     Indication: PULMONARY HYPERTENSION
     Dosage: 10 MG, QD
     Route: 048
  2. VELETRI [Suspect]
     Active Substance: EPOPROSTENOL
     Indication: PULMONARY HYPERTENSION
     Dosage: 20 NG/KG, PER MIN
     Route: 042
  3. ADEMPAS [Concomitant]
     Active Substance: RIOCIGUAT

REACTIONS (5)
  - Catheter site erythema [Unknown]
  - Catheter site vesicles [Unknown]
  - Catheter site inflammation [Unknown]
  - Central venous catheterisation [Unknown]
  - Device related infection [Unknown]
